FAERS Safety Report 6436890-0 (Version None)
Quarter: 2009Q4

REPORT INFORMATION
  Report Type: 
  Country: None (occurrence: None)
  Receive Date: 20091109
  Receipt Date: 20091103
  Transmission Date: 20100525
  Serious: Yes (Other)
  Sender: FDA-Public Use
  Company Number: WAES 0911USA00884

PATIENT
  Age: 56 Year
  Sex: Male
  Weight: 85.7298 kg

DRUGS (8)
  1. COZAAR [Suspect]
     Dosage: 50 MG, DAILY, PO
     Route: 048
     Dates: start: 20090901
  2. PLACEBO (UNSPECIFIED) UNK [Suspect]
     Indication: HYPERTENSION
     Dosage: 1 DOSE/DAILY/PO
     Route: 048
     Dates: start: 20090911
  3. DIOVAN HCT [Concomitant]
  4. VIAGRA [Concomitant]
  5. ASCORBIC ACID [Concomitant]
  6. ASPIRIN [Concomitant]
  7. GARLIC [Concomitant]
  8. VITAMINS (UNSPECIFIED) [Concomitant]

REACTIONS (2)
  - BLOOD PRESSURE INCREASED [None]
  - DEEP VEIN THROMBOSIS [None]
